FAERS Safety Report 5156525-7 (Version None)
Quarter: 2006Q4

REPORT INFORMATION
  Report Type: 
  Country: None (occurrence: None)
  Receive Date: 20061115
  Receipt Date: 20061107
  Transmission Date: 20070319
  Serious: Yes (Death, Other)
  Sender: FDA-Public Use
  Company Number: 2006BI013682

PATIENT
  Sex: Female
  Weight: 54.4316 kg

DRUGS (10)
  1. AVONEX [Suspect]
     Indication: MULTIPLE SCLEROSIS
     Dosage: 30 UG;QW;IM
     Route: 030
     Dates: start: 19960101, end: 20030101
  2. AVONEX [Suspect]
     Indication: MULTIPLE SCLEROSIS
     Dosage: 30 UG;QW;IM
     Route: 030
     Dates: start: 20030101, end: 20060718
  3. VITAMIN TAB [Concomitant]
  4. CALCIUM [Concomitant]
  5. MAGNESIUM [Concomitant]
  6. VITAMIN E [Concomitant]
  7. ASCORBIC ACID [Concomitant]
  8. M.V.I. [Concomitant]
  9. ATENOLOL [Concomitant]
  10. DITROPAN [Concomitant]

REACTIONS (5)
  - CARDIOVASCULAR DISORDER [None]
  - GAIT DISTURBANCE [None]
  - INCONTINENCE [None]
  - INITIAL INSOMNIA [None]
  - SUPRAVENTRICULAR TACHYCARDIA [None]
